FAERS Safety Report 7444241-8 (Version None)
Quarter: 2011Q2

REPORT INFORMATION
  Report Type: 
  Country: None (occurrence: None)
  Receive Date: 20110419
  Receipt Date: 20110404
  Transmission Date: 20111010
  Serious: Yes (Other)
  Sender: FDA-Public Use
  Company Number: AT-ACCORD-008753

PATIENT

DRUGS (2)
  1. PRIMIDONE [Suspect]
     Dosage: TRANSPLACENTAL
     Route: 064
  2. LEVETIRACETAM [Suspect]
     Dosage: TRANSPLACENTAL
     Route: 064

REACTIONS (3)
  - MATERNAL DRUGS AFFECTING FOETUS [None]
  - DRUG WITHDRAWAL CONVULSIONS [None]
  - DRUG WITHDRAWAL SYNDROME NEONATAL [None]
